FAERS Safety Report 12819179 (Version 1)
Quarter: 2016Q4

REPORT INFORMATION
  Report Type: Report from Study
  Country: US (occurrence: US)
  Receive Date: 20161006
  Receipt Date: 20161006
  Transmission Date: 20170207
  Serious: Yes (Other)
  Sender: FDA-Public Use
  Company Number: US-GILEAD-2016-0236500

PATIENT
  Age: 68 Year
  Sex: Male

DRUGS (2)
  1. AMBRISENTAN [Suspect]
     Active Substance: AMBRISENTAN
     Indication: PRODUCT USED FOR UNKNOWN INDICATION
     Dosage: 10 MG, UNK
     Route: 065
     Dates: start: 20110921
  2. SILDENAFIL. [Concomitant]
     Active Substance: SILDENAFIL

REACTIONS (8)
  - Hypoxia [Unknown]
  - Pulmonary hypertension [Unknown]
  - Total lung capacity decreased [Unknown]
  - Acute respiratory failure [Unknown]
  - Atrial fibrillation [Unknown]
  - Life expectancy shortened [Unknown]
  - Chronic obstructive pulmonary disease [Unknown]
  - Systemic scleroderma [Unknown]
